FAERS Safety Report 11822074 (Version 1)
Quarter: 2015Q4

REPORT INFORMATION
  Report Type: Spontaneous
  Country: US (occurrence: US)
  Receive Date: 20151210
  Receipt Date: 20151210
  Transmission Date: 20160305
  Serious: Yes (Other)
  Sender: FDA-Public Use
  Company Number: US-JNJFOC-20150515239

PATIENT
  Sex: Male

DRUGS (4)
  1. IMBRUVICA [Suspect]
     Active Substance: IBRUTINIB
     Indication: CHRONIC LYMPHOCYTIC LEUKAEMIA (IN REMISSION)
     Route: 048
     Dates: start: 20140904
  2. OXYCODONE [Concomitant]
     Active Substance: OXYCODONE
  3. PERCOCET [Concomitant]
     Active Substance: ACETAMINOPHEN\OXYCODONE HYDROCHLORIDE
  4. ALLOPURINOL. [Concomitant]
     Active Substance: ALLOPURINOL

REACTIONS (6)
  - Acne [Unknown]
  - Dry skin [Not Recovered/Not Resolved]
  - Gout [Unknown]
  - Arthralgia [Unknown]
  - Tumour lysis syndrome [Unknown]
  - Pain [Unknown]

NARRATIVE: CASE EVENT DATE: 2014
